FAERS Safety Report 5473188-1 (Version None)
Quarter: 2007Q4

REPORT INFORMATION
  Report Type: 
  Country: None (occurrence: None)
  Receive Date: 20071001
  Receipt Date: 20070920
  Transmission Date: 20080405
  Serious: Yes (Other)
  Sender: FDA-Public Use
  Company Number: ES-JNJFOC-20070904645

PATIENT
  Age: 15 Year
  Sex: Female

DRUGS (7)
  1. REMICADE [Suspect]
     Route: 042
  2. REMICADE [Suspect]
     Route: 042
  3. REMICADE [Suspect]
     Route: 042
  4. REMICADE [Suspect]
     Indication: COLITIS ULCERATIVE
     Dosage: 3 DOSES OF 5MG/KG
     Route: 042
  5. POLARAMINE [Concomitant]
     Indication: PREMEDICATION
  6. CORTICOIDS [Concomitant]
     Indication: PREMEDICATION
  7. PARACETAMOL [Concomitant]
     Indication: PREMEDICATION

REACTIONS (3)
  - DRUG INEFFECTIVE [None]
  - INFUSION RELATED REACTION [None]
  - SUFFOCATION FEELING [None]
